FAERS Safety Report 8822199 (Version 1)
Quarter: 2012Q4

REPORT INFORMATION
  Report Type: 
  Country: US (occurrence: US)
  Receive Date: 20121003
  Receipt Date: 20121003
  Transmission Date: 20130627
  Serious: No
  Sender: FDA-Public Use
  Company Number: US-PFIZER INC-2012243883

PATIENT
  Age: 55 Year
  Sex: Female
  Weight: 64.85 kg

DRUGS (4)
  1. CHANTIX [Suspect]
     Indication: SMOKING CESSATION THERAPY
     Dosage: 0.5 mg, daily
  2. CHANTIX [Suspect]
     Dosage: 0.5 mg, daily
     Dates: start: 2012
  3. CHANTIX [Suspect]
     Dosage: UNK
     Dates: end: 2012
  4. ZAFIRLUKAST [Concomitant]
     Indication: ASTHMA
     Dosage: 20 mg, 2x/day

REACTIONS (3)
  - Hypertension [Not Recovered/Not Resolved]
  - Blood cholesterol abnormal [Not Recovered/Not Resolved]
  - Nausea [Recovered/Resolved]
